FAERS Safety Report 6766771-4 (Version None)
Quarter: 2010Q2

REPORT INFORMATION
  Report Type: 
  Country: None (occurrence: None)
  Receive Date: 20100611
  Receipt Date: 20100601
  Transmission Date: 20101027
  Serious: Yes (Other)
  Sender: FDA-Public Use
  Company Number: PL-PFIZER INC-2010068945

PATIENT
  Age: 27 Year
  Sex: Female

DRUGS (9)
  1. AZITHROMYCIN [Suspect]
     Indication: PNEUMONIA
     Dosage: 500 MG, 1X/DAY
     Route: 042
  2. CEFTRIAXONE [Suspect]
     Indication: PNEUMONIA
     Dosage: 1 G, 2X/DAY
     Route: 042
  3. ERYTHROMYCIN [Suspect]
     Indication: PNEUMONIA
     Dosage: 500 MG, 2X/DAY
     Route: 043
  4. AMOXICILINA + CLAVULANICO [Suspect]
     Indication: PNEUMONIA
     Dosage: 1.2 G, 2X/DAY
     Route: 042
  5. AMBROXOL [Suspect]
     Dosage: 10 ML, 2X/DAY
  6. PARACETAMOL [Suspect]
     Dosage: 1 G, 3X/DAY
     Route: 042
  7. PROMETAZIN [Suspect]
     Dosage: 10 MG, 3X/DAY
  8. FLUTICASONE [Suspect]
     Dosage: TWO INHALATIONS DAILY
  9. SALMETEROL [Suspect]
     Dosage: TWO INHALATIONS DAILY

REACTIONS (2)
  - DEATH NEONATAL [None]
  - DRUG INEFFECTIVE [None]
